FAERS Safety Report 7235827-4 (Version None)
Quarter: 2011Q1

REPORT INFORMATION
  Report Type: 
  Country: None (occurrence: None)
  Receive Date: 20110120
  Receipt Date: 20110106
  Transmission Date: 20110831
  Serious: Yes (Hospitalization, Other)
  Sender: FDA-Public Use
  Company Number: US-ROCHE-731037

PATIENT
  Sex: Male
  Weight: 75.8 kg

DRUGS (3)
  1. TYLENOL [Concomitant]
  2. ADDERALL 10 [Concomitant]
  3. ACCUTANE [Suspect]
     Indication: ACNE
     Route: 065
     Dates: start: 19990525, end: 19990824

REACTIONS (6)
  - CROHN'S DISEASE [None]
  - DEPRESSION [None]
  - ANAL FISTULA [None]
  - GASTROINTESTINAL INJURY [None]
  - SUICIDAL IDEATION [None]
  - SMALL INTESTINAL OBSTRUCTION [None]
